FAERS Safety Report 12460223 (Version 2)
Quarter: 2016Q2

REPORT INFORMATION
  Report Type: Report from Study
  Country: IT (occurrence: IT)
  Receive Date: 20160613
  Receipt Date: 20160614
  Transmission Date: 20160815
  Serious: Yes (Death)
  Sender: FDA-Public Use
  Company Number: IT-TEVA-665246ISR

PATIENT
  Sex: Male

DRUGS (2)
  1. ETOPOSIDE. [Suspect]
     Active Substance: ETOPOSIDE
     Indication: EWING^S SARCOMA METASTATIC
     Dosage: CUMULATIVE DOSE OF IV AND ORAL 16.4 G/M2
     Route: 048
  2. ETOPOSIDE. [Suspect]
     Active Substance: ETOPOSIDE
     Indication: EWING^S SARCOMA METASTATIC
     Dosage: CUMULATIVE DOSE OF IV AND ORAL 16.4 G/M2
     Route: 042

REACTIONS (1)
  - Acute myeloid leukaemia [Fatal]
